FAERS Safety Report 11199143 (Version 1)
Quarter: 2015Q2

REPORT INFORMATION
  Report Type: Spontaneous
  Country: US (occurrence: US)
  Receive Date: 20150618
  Receipt Date: 20150618
  Transmission Date: 20150821
  Serious: Yes (Other)
  Sender: FDA-Public Use
  Company Number: US-TEVA-504786USA

PATIENT

DRUGS (1)
  1. LAMOTRIGINE. [Suspect]
     Active Substance: LAMOTRIGINE
     Indication: BIPOLAR II DISORDER

REACTIONS (7)
  - Suicidal ideation [Not Recovered/Not Resolved]
  - Social avoidant behaviour [Not Recovered/Not Resolved]
  - Drug ineffective [Not Recovered/Not Resolved]
  - Depression [Not Recovered/Not Resolved]
  - Mood swings [Not Recovered/Not Resolved]
  - Feeling of despair [Not Recovered/Not Resolved]
  - Self-injurious ideation [Not Recovered/Not Resolved]
